FAERS Safety Report 9752952 (Version 1)
Quarter: 2013Q4

REPORT INFORMATION
  Report Type: Spontaneous
  Country: FR (occurrence: FR)
  Receive Date: 20131213
  Receipt Date: 20131213
  Transmission Date: 20140711
  Serious: Yes (Life-Threatening)
  Sender: FDA-Public Use
  Company Number: US-ASTRAZENECA-2013SE90750

PATIENT
  Age: 60 Year
  Sex: Male

DRUGS (6)
  1. COKENZEN [Suspect]
     Indication: HYPERTENSION
     Dosage: 16/12.5 MG, QD
     Route: 048
  2. TEGRETOL [Suspect]
     Indication: EPILEPSY
     Route: 048
     Dates: start: 19820626
  3. SERETIDE DISCUS [Suspect]
     Dosage: 500/50 ?G, BID
     Route: 065
  4. ZONEGRAN [Suspect]
     Indication: EPILEPSY
     Route: 048
     Dates: start: 20121018, end: 20130105
  5. TAHOR [Concomitant]
     Route: 048
  6. RHINOCORT [Concomitant]
     Route: 045

REACTIONS (2)
  - Acute coronary syndrome [Recovered/Resolved]
  - Hypokalaemia [Recovered/Resolved]
